FAERS Safety Report 10335211 (Version 2)
Quarter: 2014Q3

REPORT INFORMATION
  Report Type: Spontaneous
  Country: US (occurrence: US)
  Receive Date: 20140723
  Receipt Date: 20140723
  Transmission Date: 20150326
  Serious: No
  Sender: FDA-Public Use
  Company Number: US-UNITED THERAPEUTICS-UTC-044753

PATIENT
  Sex: Male
  Weight: 117.93 kg

DRUGS (1)
  1. REMODULIN [Suspect]
     Active Substance: TREPROSTINIL
     Dosage: 0.038 UG/KG/MINUTE
     Route: 058
     Dates: start: 20140207

REACTIONS (6)
  - Infusion site warmth [Unknown]
  - Infusion site swelling [Unknown]
  - Infusion site pruritus [Unknown]
  - Infusion site pain [Not Recovered/Not Resolved]
  - Infusion site irritation [Unknown]
  - Infusion site erythema [Not Recovered/Not Resolved]

NARRATIVE: CASE EVENT DATE: 2014
